FAERS Safety Report 5475470-0 (Version None)
Quarter: 2007Q3

REPORT INFORMATION
  Report Type: 
  Country: None (occurrence: None)
  Receive Date: 20070917
  Receipt Date: 20070626
  Transmission Date: 20080115
  Serious: No
  Sender: FDA-Public Use
  Company Number: 2007-160550-NL

PATIENT
  Age: 34 Year
  Sex: Female
  Weight: 57.15 kg

DRUGS (4)
  1. PUREGON [Suspect]
     Indication: INFERTILITY MALE
     Dosage: 150 IU BID SUBCUTANEOUS, PREMIXE VIALS
     Route: 058
     Dates: start: 20070425, end: 20070430
  2. PUREGON [Suspect]
     Indication: INFERTILITY MALE
     Dosage: 150 IU QD SUBCUTANEOUS, PREMIXED VIALS
     Route: 058
     Dates: start: 20070501, end: 20070503
  3. CHORIONIC GONADOTROPIN [Suspect]
     Indication: INFERTILITY MALE
     Dosage: 5000 IU ONCE SUBCUTANEOUS
     Route: 058
     Dates: start: 20070507, end: 20070507
  4. MENOPUR [Suspect]
     Indication: INFERTILITY MALE
     Dosage: 75 IU BID SUBCUTANEOUS
     Route: 058
     Dates: start: 20070428, end: 20070506

REACTIONS (1)
  - OVARIAN HYPERSTIMULATION SYNDROME [None]
